FAERS Safety Report 19106727 (Version 1)
Quarter: 2021Q2

REPORT INFORMATION
  Report Type: Spontaneous
  Country: US (occurrence: US)
  Receive Date: 20210407
  Receipt Date: 20210407
  Transmission Date: 20210717
  Serious: Yes (Hospitalization, Other)
  Sender: FDA-Public Use
  Company Number: None

PATIENT
  Age: 64 Year
  Sex: Male

DRUGS (19)
  1. ACTEMRA [Concomitant]
     Active Substance: TOCILIZUMAB
  2. LANTUS [Concomitant]
     Active Substance: INSULIN GLARGINE
  3. SYNTHROID [Concomitant]
     Active Substance: LEVOTHYROXINE SODIUM
  4. LOPRESSOR [Concomitant]
     Active Substance: METOPROLOL TARTRATE
  5. ENBREL [Suspect]
     Active Substance: ETANERCEPT
     Indication: RHEUMATOID ARTHRITIS
     Dosage: ?          OTHER FREQUENCY:QWEEKLY;?
     Route: 058
     Dates: start: 20210206
  6. NORVASC [Concomitant]
     Active Substance: AMLODIPINE BESYLATE
  7. VIT  D [Concomitant]
     Active Substance: VITAMIN D NOS
  8. ACTEMRA [Suspect]
     Active Substance: TOCILIZUMAB
  9. EYE VITS [Concomitant]
  10. LIPITOR [Concomitant]
     Active Substance: ATORVASTATIN CALCIUM
  11. LOSARTAN. [Concomitant]
     Active Substance: LOSARTAN
  12. METFORMIN [Concomitant]
     Active Substance: METFORMIN HYDROCHLORIDE
  13. VIT B1 [Concomitant]
     Active Substance: THIAMINE HYDROCHLORIDE
  14. VITAMIN C [Concomitant]
     Active Substance: ASCORBIC ACID
  15. ASPIRIN. [Concomitant]
     Active Substance: ASPIRIN
  16. HUMIRA [Suspect]
     Active Substance: ADALIMUMAB
     Indication: RHEUMATOID ARTHRITIS
     Dosage: ?          OTHER FREQUENCY:Q14D;?
     Route: 058
     Dates: start: 20200118
  17. PLAVIX [Concomitant]
     Active Substance: CLOPIDOGREL BISULFATE
  18. NOVOLOG [Concomitant]
     Active Substance: INSULIN ASPART
  19. TYLENOL [Concomitant]
     Active Substance: ACETAMINOPHEN

REACTIONS (3)
  - Cardiac operation [None]
  - Arthralgia [None]
  - Pain [None]

NARRATIVE: CASE EVENT DATE: 20210315
